FAERS Safety Report 5704500-3 (Version None)
Quarter: 2008Q2

REPORT INFORMATION
  Report Type: 
  Country: None (occurrence: None)
  Receive Date: 20080414
  Receipt Date: 20080401
  Transmission Date: 20081010
  Serious: No
  Sender: FDA-Public Use
  Company Number: US-ELI_LILLY_AND_COMPANY-US200803000565

PATIENT
  Age: 56 Year
  Sex: Female
  Weight: 52.608 kg

DRUGS (4)
  1. FORTEO [Suspect]
     Indication: OSTEOPOROSIS
     Dosage: 20 UG, DAILY (1/D)
     Dates: start: 20071211, end: 20080225
  2. ALLEGRA D                          /01367401/ [Concomitant]
  3. ALBUTEROL [Concomitant]
     Indication: ASTHMA
     Dosage: UNK, AS NEEDED
  4. FLOVENT [Concomitant]

REACTIONS (4)
  - ALOPECIA [None]
  - ASTHENIA [None]
  - GAIT DISTURBANCE [None]
  - PRESYNCOPE [None]
